FAERS Safety Report 10659803 (Version 2)
Quarter: 2015Q1

REPORT INFORMATION
  Report Type: Report from Study
  Country: IL (occurrence: IL)
  Receive Date: 20141217
  Receipt Date: 20150115
  Transmission Date: 20150720
  Serious: Yes (Hospitalization)
  Sender: FDA-Public Use
  Company Number: IL-009507513-1412ISR007163

PATIENT
  Age: 34 Year
  Sex: Male

DRUGS (2)
  1. PEMBROLIZUMAB. [Suspect]
     Active Substance: PEMBROLIZUMAB
     Indication: HEPATIC NEOPLASM
     Dosage: UNK UNK, ONCE
  2. PEMBROLIZUMAB. [Suspect]
     Active Substance: PEMBROLIZUMAB
     Indication: BONE NEOPLASM

REACTIONS (3)
  - Abdominal pain [Recovering/Resolving]
  - Blood calcium increased [Recovered/Resolved]
  - Oedema peripheral [Recovering/Resolving]
